FAERS Safety Report 10064180 (Version 1)
Quarter: 2013Q4

REPORT INFORMATION
  Report Type: Spontaneous
  Country: CH (occurrence: None)
  Receive Date: 20131112
  Receipt Date: 20131112
  Transmission Date: 20140711
  Serious: Yes (Hospitalization)
  Sender: FDA-Public Use
  Company Number: 20130624

PATIENT
  Age: 1 Year
  Sex: Male

DRUGS (1)
  1. VENOFER [Suspect]
     Indication: IRON DEFICIENCY ANAEMIA
     Dosage: OVER 90
     Route: 041
     Dates: start: 20130924, end: 20130924

REACTIONS (12)
  - Hypotonia [None]
  - Hypotonic-hyporesponsive episode [None]
  - Vomiting [None]
  - Swelling [None]
  - Rash [None]
  - Crying [None]
  - Gait disturbance [None]
  - Somnolence [None]
  - Pallor [None]
  - Angioedema [None]
  - Erythema [None]
  - Blood pressure decreased [None]
